FAERS Safety Report 13042312 (Version 2)
Quarter: 2016Q4

REPORT INFORMATION
  Report Type: Spontaneous
  Country: IT (occurrence: IT)
  Receive Date: 20161219
  Receipt Date: 20161227
  Transmission Date: 20170207
  Serious: Yes (Death, Hospitalization, Other)
  Sender: FDA-Public Use
  Company Number: IT-GILEAD-2016-0249392

PATIENT
  Age: 84 Year
  Sex: Male
  Weight: 75 kg

DRUGS (4)
  1. HARVONI [Suspect]
     Active Substance: LEDIPASVIR\SOFOSBUVIR
     Indication: CHRONIC HEPATITIS C
     Dosage: 1 DF, QD
     Route: 048
     Dates: start: 20161006, end: 20161109
  2. SIMVASTATIN. [Concomitant]
     Active Substance: SIMVASTATIN
  3. QUINAZIL [Concomitant]
     Active Substance: QUINAPRIL HYDROCHLORIDE
  4. CARDICOR [Concomitant]
     Active Substance: BISOPROLOL

REACTIONS (1)
  - Cerebral haemorrhage [Fatal]

NARRATIVE: CASE EVENT DATE: 20161109
